FAERS Safety Report 16263829 (Version 1)
Quarter: 2019Q2

REPORT INFORMATION
  Report Type: Spontaneous
  Country: IT (occurrence: IT)
  Receive Date: 20190502
  Receipt Date: 20190502
  Transmission Date: 20190711
  Serious: Yes (Other)
  Sender: FDA-Public Use
  Company Number: IT-AUROBINDO-AUR-APL-2019-023861

PATIENT

DRUGS (5)
  1. RAMIPRIL. [Concomitant]
     Active Substance: RAMIPRIL
     Indication: HYPERTENSION
     Dosage: 5 MG, QD
     Route: 065
  2. VITAMIN D2 [Suspect]
     Active Substance: ERGOCALCIFEROL
     Indication: THYROID CANCER
     Dosage: 50000 U, QMO,1 MONTH
     Route: 048
  3. TERIPARATIDE [Suspect]
     Active Substance: TERIPARATIDE
     Indication: PRODUCT USED FOR UNKNOWN INDICATION
     Dosage: 20 UG, QD
     Route: 065
  4. CALCIUM [Suspect]
     Active Substance: CALCIUM
     Indication: THYROID CANCER
     Dosage: 1 G, QMO
     Route: 048
  5. RISEDRONATE [Suspect]
     Active Substance: RISEDRONATE SODIUM
     Indication: THYROID CANCER
     Dosage: 35 MG, QW
     Route: 065

REACTIONS (3)
  - Ulcer [Recovered/Resolved]
  - Calciphylaxis [Recovered/Resolved]
  - Pain [Recovered/Resolved]
